FAERS Safety Report 14527911 (Version 1)
Quarter: 2018Q1

REPORT INFORMATION
  Report Type: Report from Study
  Country: BR (occurrence: BR)
  Receive Date: 20180213
  Receipt Date: 20180213
  Transmission Date: 20180509
  Serious: Yes (Life-Threatening)
  Sender: FDA-Public Use
  Company Number: PHHY2018BR018727

PATIENT
  Sex: Male
  Weight: 65 kg

DRUGS (1)
  1. ENTRESTO [Suspect]
     Active Substance: SACUBITRIL\VALSARTAN
     Indication: CARDIAC DISORDER
     Dosage: 50 MG (24MG OF SACUBITRIL AND 26MG OF VALSARTAN), BID (1 TABLET IN THE MORNING AND1 TABLET AT NIGHT)
     Route: 048
     Dates: start: 20180117

REACTIONS (4)
  - Heart rate decreased [Unknown]
  - Asthenia [Unknown]
  - Cardiac failure [Unknown]
  - Product use in unapproved indication [Unknown]
